FAERS Safety Report 7997388-1 (Version None)
Quarter: 2011Q4

REPORT INFORMATION
  Report Type: 
  Country: None (occurrence: None)
  Receive Date: 20111221
  Receipt Date: 20111215
  Transmission Date: 20120403
  Serious: Yes (Death, Hospitalization)
  Sender: FDA-Public Use
  Company Number: US-CELGENEUS-163-21880-11102136

PATIENT
  Sex: Male

DRUGS (5)
  1. CYCLOPHOSPHAMIDE [Concomitant]
     Route: 065
  2. KEFLEX [Concomitant]
     Route: 065
  3. REVLIMID [Suspect]
     Dosage: 25 MILLIGRAM
     Route: 048
     Dates: start: 20100723
  4. OXYCODONE HCL [Concomitant]
     Route: 065
  5. VELCADE [Concomitant]
     Route: 065

REACTIONS (3)
  - DEATH [None]
  - MULTIPLE MYELOMA [None]
  - NEOPLASM PROGRESSION [None]
